FAERS Safety Report 7676129-1 (Version None)
Quarter: 2011Q3

REPORT INFORMATION
  Report Type: 
  Country: None (occurrence: None)
  Receive Date: 20110811
  Receipt Date: 20110801
  Transmission Date: 20111222
  Serious: Yes (Hospitalization)
  Sender: FDA-Public Use
  Company Number: US-JNJFOC-20100601982

PATIENT
  Sex: Male
  Weight: 67.3 kg

DRUGS (5)
  1. CIPROFLOXACIN [Concomitant]
  2. REMICADE [Suspect]
     Indication: CROHN'S DISEASE
     Dosage: TOTAL 26 DOSES
     Route: 042
     Dates: start: 20100303
  3. DRUGS FOR ACID RELATED DISORDERS [Concomitant]
  4. REMICADE [Suspect]
     Route: 042
     Dates: start: 20060412
  5. METRONIDAZOLE [Concomitant]

REACTIONS (4)
  - INTESTINAL STENOSIS [None]
  - FISTULA [None]
  - WEIGHT DECREASED [None]
  - CELLULITIS [None]
